FAERS Safety Report 8157211 (Version 9)
Quarter: 2018Q1

REPORT INFORMATION
  Report Type: Spontaneous
  Country: BR (occurrence: BR)
  Receive Date: 20110927
  Receipt Date: 20180310
  Transmission Date: 20180509
  Serious: Yes (Other)
  Sender: FDA-Public Use
  Company Number: BR-AMGEN-BRASP2011049059

PATIENT
  Age: 5 Year
  Sex: Female
  Weight: 62 kg

DRUGS (2)
  1. ENBREL [Suspect]
     Active Substance: ETANERCEPT
     Indication: JUVENILE IDIOPATHIC ARTHRITIS
     Dosage: 25 MG, QWK
     Route: 065
  2. ENBREL [Suspect]
     Active Substance: ETANERCEPT
     Dosage: 25 MG, CYCLIC (1ML EVERY 15 DAYS)
     Route: 065
     Dates: start: 201712, end: 20180216

REACTIONS (10)
  - Lower respiratory tract inflammation [Recovered/Resolved]
  - Product quality issue [Recovered/Resolved]
  - Pyrexia [Recovered/Resolved]
  - Uveitis [Not Recovered/Not Resolved]
  - Injection site pain [Recovered/Resolved]
  - Influenza [Recovered/Resolved]
  - Injection site vesicles [Recovered/Resolved]
  - Product use issue [Unknown]
  - Pharyngeal inflammation [Recovered/Resolved]
  - Injection site haematoma [Recovered/Resolved]

NARRATIVE: CASE EVENT DATE: 20110912
